FAERS Safety Report 9287984 (Version 1)
Quarter: 2013Q2

REPORT INFORMATION
  Report Type: Spontaneous
  Country: US (occurrence: None)
  Receive Date: 20130513
  Receipt Date: 20130513
  Transmission Date: 20140414
  Serious: No
  Sender: FDA-Public Use
  Company Number: None

PATIENT
  Age: 54 Year
  Sex: Female

DRUGS (2)
  1. EXJADE 500MG NOVARTIS [Suspect]
     Route: 048
     Dates: start: 20130504, end: 20130509
  2. EXJADE 500MG NOVARTIS [Suspect]
     Route: 048
     Dates: start: 20130504, end: 20130509

REACTIONS (1)
  - Platelet count decreased [None]
